FAERS Safety Report 10671537 (Version 2)
Quarter: 2015Q1

REPORT INFORMATION
  Report Type: Spontaneous
  Country: US (occurrence: US)
  Receive Date: 20141223
  Receipt Date: 20150127
  Transmission Date: 20150720
  Serious: Yes (Other)
  Sender: FDA-Public Use
  Company Number: US-BAYER-2014-186725

PATIENT
  Age: 24 Year
  Sex: Female
  Weight: 63 kg

DRUGS (2)
  1. MIRENA [Suspect]
     Active Substance: LEVONORGESTREL
     Indication: CONTRACEPTION
     Dosage: 20 MCG/24HR, CONT
     Route: 015
     Dates: start: 20071001, end: 20090122
  2. IBUPROFENE [Concomitant]
     Active Substance: IBUPROFEN

REACTIONS (8)
  - Uterine perforation [None]
  - Pelvic pain [None]
  - Anxiety [None]
  - Genital haemorrhage [None]
  - Device dislocation [None]
  - Device issue [None]
  - Emotional distress [None]
  - Injury [None]

NARRATIVE: CASE EVENT DATE: 2007
